FAERS Safety Report 11613477 (Version 4)
Quarter: 2016Q3

REPORT INFORMATION
  Report Type: Spontaneous
  Country: BR (occurrence: BR)
  Receive Date: 20151008
  Receipt Date: 20160823
  Transmission Date: 20161109
  Serious: Yes (Life-Threatening, Hospitalization, Other)
  Sender: FDA-Public Use
  Company Number: BR-BRISTOL-MYERS SQUIBB COMPANY-BMS-2015-066141

PATIENT
  Age: 96 Year
  Sex: Male
  Weight: 60 kg

DRUGS (4)
  1. DIAMICRON [Concomitant]
     Active Substance: GLICLAZIDE
     Indication: DIABETES MELLITUS
     Route: 065
  2. BICALUTAMIDE. [Concomitant]
     Active Substance: BICALUTAMIDE
     Indication: NEOPLASM MALIGNANT
     Dosage: 50 MG, UNK
     Route: 065
  3. ELIQUIS [Suspect]
     Active Substance: APIXABAN
     Indication: CEREBROVASCULAR ACCIDENT PROPHYLAXIS
     Dosage: 5 MG, QD
     Route: 048
     Dates: start: 201404
  4. INSULIN NPH                        /01223208/ [Concomitant]
     Indication: DIABETES MELLITUS
     Dosage: 15 UNIT, QD
     Route: 065

REACTIONS (7)
  - Coronary artery bypass [Unknown]
  - Cardiac pacemaker insertion [Recovered/Resolved]
  - Treatment noncompliance [Not Recovered/Not Resolved]
  - Prescribed underdose [Unknown]
  - Cardiac arrest [Unknown]
  - Cardiovascular disorder [Recovered/Resolved]
  - Heart rate decreased [Recovered/Resolved]

NARRATIVE: CASE EVENT DATE: 2015
